FAERS Safety Report 16393051 (Version 1)
Quarter: 2019Q2

REPORT INFORMATION
  Report Type: Spontaneous
  Country: US (occurrence: US)
  Receive Date: 20190605
  Receipt Date: 20190605
  Transmission Date: 20190711
  Serious: Yes (Death)
  Sender: FDA-Public Use
  Company Number: US-FRESENIUS KABI-FK201906215

PATIENT
  Sex: Female

DRUGS (1)
  1. DIPYRIDAMOLE (MANUFACTURER UNKNOWN) [Suspect]
     Active Substance: DIPYRIDAMOLE
     Indication: ANTIPLATELET THERAPY
     Dosage: UNKNOWN
     Route: 065

REACTIONS (1)
  - Haemorrhagic stroke [Fatal]
